FAERS Safety Report 10265504 (Version 1)
Quarter: 2014Q2

REPORT INFORMATION
  Report Type: Spontaneous
  Country: US (occurrence: None)
  Receive Date: 20140625
  Receipt Date: 20140625
  Transmission Date: 20141212
  Serious: Yes (Other)
  Sender: FDA-Public Use
  Company Number: None

PATIENT
  Age: 29 Year
  Sex: Female

DRUGS (3)
  1. DEMEROL 50MG [Suspect]
  2. SPINAL ANETHESIA (BUPIVICAINE WITH FENTANYL INTRATHECAL) [Concomitant]
  3. BICITRA PRE-OP [Concomitant]

REACTIONS (6)
  - Panic attack [None]
  - Dysphoria [None]
  - Dyspnoea [None]
  - Screaming [None]
  - Dyskinesia [None]
  - Exposure during pregnancy [None]
